FAERS Safety Report 4650933-6 (Version None)
Quarter: 2005Q2

REPORT INFORMATION
  Report Type: 
  Country: None (occurrence: None)
  Receive Date: 20050503
  Receipt Date: 20050420
  Transmission Date: 20051028
  Serious: Yes (Disabling, Other)
  Sender: FDA-Public Use
  Company Number: US-GLAXOSMITHKLINE-A0554929A

PATIENT
  Age: 70 Year
  Sex: Female
  Weight: 81 kg

DRUGS (1)
  1. CITRUCEL SUGAR-FREE SUSPENSION ORANGE [Suspect]
     Indication: IRRITABLE BOWEL SYNDROME
     Route: 048
     Dates: start: 20010101

REACTIONS (7)
  - ASTHENIA [None]
  - DIFFICULTY IN WALKING [None]
  - MOVEMENT DISORDER [None]
  - MYOPATHY [None]
  - RHEUMATOID ARTHRITIS [None]
  - WALKING AID USER [None]
  - WHEELCHAIR USER [None]
